FAERS Safety Report 6958618-8 (Version None)
Quarter: 2010Q3

REPORT INFORMATION
  Report Type: 
  Country: None (occurrence: None)
  Receive Date: 20100827
  Receipt Date: 20100827
  Transmission Date: 20110219
  Serious: Yes (Hospitalization, Disabling)
  Sender: FDA-Public Use
  Company Number: None

PATIENT
  Sex: Female
  Weight: 58.0604 kg

DRUGS (1)
  1. AVELOX [Suspect]
     Indication: LUNG INFECTION
     Dosage: 400 MG 1 TABLET A DAY MOUTH
     Route: 048

REACTIONS (5)
  - DEHYDRATION [None]
  - DRUG EFFECT DECREASED [None]
  - EMOTIONAL DISORDER [None]
  - HALLUCINATION [None]
  - TREMOR [None]
